FAERS Safety Report 8463454-X (Version None)
Quarter: 2012Q2

REPORT INFORMATION
  Report Type: 
  Country: None (occurrence: None)
  Receive Date: 20120323
  Receipt Date: 20111220
  Transmission Date: 20120825
  Serious: Yes (Hospitalization, Other)
  Sender: FDA-Public Use
  Company Number: 163-21880-11092760

PATIENT
  Age: 80 Year
  Sex: Female

DRUGS (9)
  1. BACTRIM DS [Concomitant]
  2. DEXAMETHASONE [Concomitant]
  3. BENICAR [Concomitant]
  4. REVLIMID [Suspect]
     Indication: MULTIPLE MYELOMA
     Dosage: 25 MG, DAILY X 3 WEEKS, OFF 1 WEEK, REPEAT, PO; 25 MG, 1 IN 1 D, PO
     Route: 048
     Dates: start: 20090713, end: 20091001
  5. REVLIMID [Suspect]
     Indication: MULTIPLE MYELOMA
     Dosage: 25 MG, DAILY X 3 WEEKS, OFF 1 WEEK, REPEAT, PO; 25 MG, 1 IN 1 D, PO
     Route: 048
     Dates: start: 20111020
  6. DIOVAN HCT (CO-DIOVAN) [Concomitant]
  7. BONIVA [Concomitant]
  8. PROCHLORPERAZINE (PROCHLORPERINE) [Concomitant]
  9. ACYCLOVIR [Concomitant]

REACTIONS (1)
  - PULMONARY EMBOLISM [None]
